FAERS Safety Report 16747563 (Version 1)
Quarter: 2019Q3

REPORT INFORMATION
  Report Type: Report from Study
  Country: None (occurrence: GB)
  Receive Date: 20190827
  Receipt Date: 20190827
  Transmission Date: 20191005
  Serious: Yes (Hospitalization)
  Sender: FDA-Public Use
  Company Number: GB-ABBVIE-19P-167-2846819-00

PATIENT
  Age: 46 Year
  Sex: Male
  Weight: 56.4 kg

DRUGS (16)
  1. ALVOCIDIB [Suspect]
     Active Substance: ALVOCIDIB
     Dosage: DAYS 1-3 OF EACH 28-DAY CYCLE
     Route: 042
     Dates: start: 20190626, end: 20190626
  2. RED BLOOD CELLS [Concomitant]
     Active Substance: HUMAN RED BLOOD CELL
     Indication: PRODUCT USED FOR UNKNOWN INDICATION
     Route: 042
     Dates: start: 20190708, end: 20190708
  3. ONDANSETRON [Concomitant]
     Active Substance: ONDANSETRON
     Indication: VOMITING
  4. ALVOCIDIB [Suspect]
     Active Substance: ALVOCIDIB
     Dosage: DAYS 1-3 OF EACH 28-DAY CYCLE
     Route: 042
     Dates: start: 20190627, end: 20190627
  5. VENETOCLAX. [Suspect]
     Active Substance: VENETOCLAX
     Indication: ACUTE MYELOID LEUKAEMIA
     Route: 048
     Dates: start: 20190624, end: 20190624
  6. AMBISOME [Concomitant]
     Active Substance: AMPHOTERICIN B
     Indication: PRODUCT USED FOR UNKNOWN INDICATION
     Route: 042
     Dates: start: 20190708, end: 20190708
  7. ONDANSETRON [Concomitant]
     Active Substance: ONDANSETRON
     Indication: NAUSEA
     Route: 048
     Dates: start: 20190625
  8. VENETOCLAX. [Suspect]
     Active Substance: VENETOCLAX
     Route: 048
     Dates: start: 20190627, end: 20190716
  9. ALVOCIDIB [Suspect]
     Active Substance: ALVOCIDIB
     Indication: ACUTE MYELOID LEUKAEMIA
     Dosage: DAYS 1-3 OF EACH 28-DAY CYCLE
     Route: 042
     Dates: start: 20190624, end: 20190624
  10. PLATELETS [Concomitant]
     Active Substance: HUMAN PLATELET, ALLOGENIC
     Indication: PRODUCT USED FOR UNKNOWN INDICATION
     Route: 042
     Dates: start: 20190708, end: 20190708
  11. ACICLOVIR [Concomitant]
     Active Substance: ACYCLOVIR
     Indication: INFECTION PROPHYLAXIS
     Dosage: MORNING
     Route: 048
     Dates: start: 20190624
  12. CYCLIZINE LACTATE [Concomitant]
     Active Substance: CYCLIZINE LACTATE
     Indication: VOMITING
     Route: 048
     Dates: start: 20190708
  13. VENETOCLAX. [Suspect]
     Active Substance: VENETOCLAX
     Route: 048
     Dates: start: 20190626, end: 20190626
  14. RASBURICASE [Concomitant]
     Active Substance: RASBURICASE
     Indication: PROPHYLAXIS
     Route: 048
     Dates: start: 20190624, end: 20190627
  15. ALLOPURINOL. [Concomitant]
     Active Substance: ALLOPURINOL
     Indication: PROPHYLAXIS
     Route: 048
     Dates: start: 20190630
  16. GLUCOSE 4% SODIUM CHLORIDE 0.18% [Concomitant]
     Indication: PROPHYLAXIS
     Route: 042
     Dates: start: 20190623, end: 20190627

REACTIONS (1)
  - Lower respiratory tract infection fungal [Recovered/Resolved]

NARRATIVE: CASE EVENT DATE: 20190709
